FAERS Safety Report 6382602-9 (Version None)
Quarter: 2009Q3

REPORT INFORMATION
  Report Type: 
  Country: None (occurrence: None)
  Receive Date: 20090930
  Receipt Date: 20090928
  Transmission Date: 20100115
  Serious: Yes (Life-Threatening)
  Sender: FDA-Public Use
  Company Number: B0595552A

PATIENT
  Sex: Female

DRUGS (7)
  1. AUGMENTIN '125' [Suspect]
     Indication: MASTITIS BACTERIAL
     Dosage: 2G PER DAY
     Route: 048
     Dates: start: 20090820, end: 20090820
  2. URBASON [Concomitant]
     Dosage: 80MG PER DAY
     Route: 042
  3. ADRENALINE [Concomitant]
     Route: 042
  4. ZANTAC [Concomitant]
     Dosage: 50MG PER DAY
     Route: 042
  5. TRIMETON [Concomitant]
     Dosage: 10MG PER DAY
     Route: 030
  6. FLEBOCORTID [Concomitant]
     Dosage: 500MG PER DAY
     Route: 042
  7. PLASIL [Concomitant]
     Dosage: 10MG PER DAY
     Route: 042

REACTIONS (4)
  - ABDOMINAL PAIN UPPER [None]
  - ANAPHYLACTIC SHOCK [None]
  - ASTHENIA [None]
  - TREMOR [None]
